FAERS Safety Report 24569463 (Version 1)
Quarter: 2024Q4

REPORT INFORMATION
  Report Type: Report from Study
  Country: AT (occurrence: AT)
  Receive Date: 20241031
  Receipt Date: 20241031
  Transmission Date: 20250115
  Serious: Yes (Death)
  Sender: ABBVIE
  Company Number: AT-ABBVIE-5965398

PATIENT
  Sex: Female

DRUGS (1)
  1. FOSCARBIDOPA\FOSLEVODOPA [Suspect]
     Active Substance: FOSCARBIDOPA\FOSLEVODOPA
     Indication: Parkinson^s disease
     Dosage: CR 0.24 ML/H; CR HIGH 0.27 ML/H; CR LOW 0.16 ML/H; ED 0.10 ML
     Route: 058
     Dates: start: 20240429

REACTIONS (3)
  - Death [Fatal]
  - Influenza like illness [Unknown]
  - General physical health deterioration [Unknown]
